FAERS Safety Report 20096708 (Version 2)
Quarter: 2021Q4

REPORT INFORMATION
  Report Type: Spontaneous
  Country: JP (occurrence: JP)
  Receive Date: 20211122
  Receipt Date: 20211202
  Transmission Date: 20220303
  Serious: Yes (Death, Other)
  Sender: FDA-Public Use
  Company Number: JP-SA-2021SA387003

PATIENT
  Age: 95 Year
  Sex: Female

DRUGS (1)
  1. CLOPIDOGREL BISULFATE [Suspect]
     Active Substance: CLOPIDOGREL BISULFATE
     Indication: Antiplatelet therapy
     Dosage: UNK
     Route: 048

REACTIONS (4)
  - Subdural haematoma [Fatal]
  - Brain oedema [Fatal]
  - Fall [Unknown]
  - Haemorrhage subcutaneous [Unknown]
